FAERS Safety Report 7645886-2 (Version None)
Quarter: 2011Q3

REPORT INFORMATION
  Report Type: 
  Country: None (occurrence: None)
  Receive Date: 20110729
  Receipt Date: 20110719
  Transmission Date: 20111222
  Serious: Yes (Other)
  Sender: FDA-Public Use
  Company Number: GB-ALLERGAN-1109163US

PATIENT
  Age: 63 Year
  Sex: Male
  Weight: 80 kg

DRUGS (2)
  1. OZURDEX [Suspect]
     Indication: RETINAL VEIN OCCLUSION
     Dosage: UNK
     Route: 031
     Dates: start: 20110328, end: 20110328
  2. ASPIRIN [Concomitant]
     Indication: PROPHYLAXIS

REACTIONS (2)
  - SUDDEN VISUAL LOSS [None]
  - RETINAL ARTERY OCCLUSION [None]
